FAERS Safety Report 18490322 (Version 1)
Quarter: 2020Q4

REPORT INFORMATION
  Report Type: Spontaneous
  Country: DE (occurrence: DE)
  Receive Date: 20201111
  Receipt Date: 20201111
  Transmission Date: 20210114
  Serious: Yes (Hospitalization)
  Sender: FDA-Public Use
  Company Number: DE-PFIZER INC-2020428931

PATIENT
  Age: 47 Year
  Sex: Male

DRUGS (9)
  1. IBUPROFEN. [Suspect]
     Active Substance: IBUPROFEN
     Dosage: 800 MG, 8
  2. CIPRAMIL [CITALOPRAM HYDROBROMIDE] [Suspect]
     Active Substance: CITALOPRAM HYDROBROMIDE
     Dosage: 20 MG, 1X/DAY, 1-0-0-0
  3. TESTOGEL [Suspect]
     Active Substance: TESTOSTERONE
     Dosage: 50 MG, 1X/DAY, 1-0-0-0
  4. ACTRAPID [Concomitant]
     Active Substance: INSULIN HUMAN
     Dosage: ACCORDING TO SCHEME
     Route: 058
  5. ERGENYL CHRONO [Suspect]
     Active Substance: VALPROIC ACID
     Dosage: 500 MG, 2X/DAY, 1-0-1-0
  6. THYRONAJOD [Concomitant]
     Active Substance: LEVOTHYROXINE SODIUM\POTASSIUM IODIDE
     Dosage: 1 DF, 1X/DAY, 1-0-0-0
  7. METAMIZOLE [Suspect]
     Active Substance: METAMIZOLE
     Dosage: 500 MG, 2
  8. PANTOPRAZOLE [Concomitant]
     Active Substance: PANTOPRAZOLE
     Dosage: 40 MG, 2X/DAY,1-0-1-0
  9. TRULICITY [Concomitant]
     Active Substance: DULAGLUTIDE
     Dosage: 1.5 MG, WEEKLY, ON WEDNESDAYS
     Route: 058

REACTIONS (2)
  - Headache [Unknown]
  - Product administration error [Unknown]
